FAERS Safety Report 8423645-0 (Version None)
Quarter: 2012Q2

REPORT INFORMATION
  Report Type: 
  Country: None (occurrence: None)
  Receive Date: 20120608
  Receipt Date: 20120607
  Transmission Date: 20120825
  Serious: Yes (Death, Hospitalization)
  Sender: FDA-Public Use
  Company Number: CN-ABBOTT-12P-035-0940377-00

PATIENT
  Age: 54 Year
  Sex: Female

DRUGS (5)
  1. SODIUM BROMIDE [Interacting]
     Route: 048
     Dates: start: 20120520, end: 20120522
  2. DEPAKENE [Suspect]
     Indication: EPILEPSY
     Dosage: 500 MILLIGRAM(S); TWICE A DAY
     Route: 048
     Dates: start: 20120520, end: 20120522
  3. SODIUM BROMIDE [Interacting]
     Indication: EPILEPSY
     Route: 048
  4. PHENOBARBITAL TAB [Interacting]
     Indication: EPILEPSY
     Route: 048
  5. PHENOBARBITAL TAB [Interacting]
     Route: 048
     Dates: start: 20120520, end: 20120522

REACTIONS (2)
  - STATUS EPILEPTICUS [None]
  - DRUG INTERACTION [None]
